FAERS Safety Report 11671790 (Version 1)
Quarter: 2015Q4

REPORT INFORMATION
  Report Type: Report from Study
  Country: US (occurrence: US)
  Receive Date: 20151028
  Receipt Date: 20151028
  Transmission Date: 20160304
  Serious: No
  Sender: FDA-Public Use
  Company Number: PHEH2014US024490

PATIENT

DRUGS (1)
  1. MYFORTIC [Suspect]
     Active Substance: MYCOPHENOLATE SODIUM
     Indication: PRODUCT USED FOR UNKNOWN INDICATION
     Dosage: 180 MG, BID
     Route: 048

REACTIONS (9)
  - Blood urea increased [Unknown]
  - Haemoglobin abnormal [Unknown]
  - Blood parathyroid hormone increased [Unknown]
  - Headache [Unknown]
  - Haematocrit decreased [Unknown]
  - Blood alkaline phosphatase increased [Unknown]
  - Renal impairment [Unknown]
  - Blood creatinine increased [Unknown]
  - Blood potassium increased [Unknown]
